FAERS Safety Report 9596683 (Version 4)
Quarter: 2013Q4

REPORT INFORMATION
  Report Type: Report from Study
  Country: CA (occurrence: CA)
  Receive Date: 20131004
  Receipt Date: 20131010
  Transmission Date: 20140711
  Serious: Yes (Hospitalization, Other)
  Sender: FDA-Public Use
  Company Number: CA-ROCHE-1267225

PATIENT
  Age: 62 Year
  Sex: Male
  Weight: 83 kg

DRUGS (13)
  1. AVASTIN [Suspect]
     Indication: GLIOBLASTOMA
     Route: 042
     Dates: start: 20130814, end: 20130927
  2. BENADRYL (CANADA) [Concomitant]
     Indication: PREMEDICATION
     Route: 048
     Dates: start: 20130814
  3. TYLENOL [Concomitant]
     Route: 048
     Dates: start: 20130814
  4. FERROUS SULFATE [Concomitant]
  5. LOSARTAN PLUS [Concomitant]
  6. VERAPAMIL [Concomitant]
  7. LEVETIRACETAM [Concomitant]
  8. INSULIN [Concomitant]
  9. ATORVASTATIN [Concomitant]
  10. RANITIDINE [Concomitant]
  11. DEXAMETHASONE [Concomitant]
     Dosage: WILL TITRATE TO 4MG AFTER 5 DAYS THEN 2 MG FOR 5 DAYS AND THEN 1 MG FOR 5 DAYS,THEN 0.5 MG FOR 10 DA
     Route: 065
  12. ACETAMINOPHEN [Concomitant]
     Indication: PREMEDICATION
     Route: 048
     Dates: start: 20130814
  13. DIPHENHYDRAMINE HCL [Concomitant]
     Route: 048
     Dates: start: 20130814

REACTIONS (25)
  - Dizziness [Unknown]
  - Fatigue [Unknown]
  - Infection [Not Recovered/Not Resolved]
  - Incontinence [Not Recovered/Not Resolved]
  - Mobility decreased [Not Recovered/Not Resolved]
  - Confusional state [Not Recovered/Not Resolved]
  - Fall [Unknown]
  - Pyrexia [Unknown]
  - Protein urine [Unknown]
  - Diarrhoea [Recovered/Resolved]
  - Haematochezia [Recovered/Resolved]
  - Gout [Unknown]
  - Cellulitis [Not Recovered/Not Resolved]
  - Rash [Unknown]
  - Platelet count decreased [Unknown]
  - Wound infection [Unknown]
  - Haemoglobin decreased [Unknown]
  - Nausea [Recovered/Resolved]
  - Weight decreased [Unknown]
  - Eating disorder [Recovering/Resolving]
  - Poor quality sleep [Recovering/Resolving]
  - Skin ulcer [Recovering/Resolving]
  - Ear pain [Unknown]
  - Disease progression [Not Recovered/Not Resolved]
  - Headache [Unknown]
